FAERS Safety Report 9743268 (Version 2)
Quarter: 2015Q3

REPORT INFORMATION
  Report Type: Spontaneous
  Country: US (occurrence: US)
  Receive Date: 20131210
  Receipt Date: 20150805
  Transmission Date: 20151125
  Serious: No
  Sender: FDA-Public Use
  Company Number: US-GILEAD-2009-0025484

PATIENT
  Age: 76 Year
  Sex: Male

DRUGS (14)
  1. LIPITOR [Concomitant]
     Active Substance: ATORVASTATIN CALCIUM
  2. PLAVIX [Concomitant]
     Active Substance: CLOPIDOGREL BISULFATE
  3. ECOTRIN [Concomitant]
     Active Substance: ASPIRIN
  4. SPIRIVA [Concomitant]
     Active Substance: TIOTROPIUM BROMIDE MONOHYDRATE
  5. LETAIRIS [Suspect]
     Active Substance: AMBRISENTAN
     Indication: PULMONARY ARTERIAL HYPERTENSION
     Route: 048
     Dates: start: 20091106
  6. MULTIVITAMIN [Concomitant]
     Active Substance: VITAMINS
  7. FORADIL [Concomitant]
     Active Substance: FORMOTEROL FUMARATE
  8. TYLENOL [Concomitant]
     Active Substance: ACETAMINOPHEN
  9. VITAMIN C [Concomitant]
     Active Substance: ASCORBIC ACID
  10. PREDNISONE. [Concomitant]
     Active Substance: PREDNISONE
  11. MUCOMYST [Concomitant]
     Active Substance: ACETYLCYSTEINE
  12. LORAZEPAM. [Concomitant]
     Active Substance: LORAZEPAM
  13. ALBUTEROL. [Concomitant]
     Active Substance: ALBUTEROL
  14. METAMUCIL [Concomitant]
     Active Substance: PLANTAGO SEED

REACTIONS (1)
  - Peripheral swelling [Unknown]

NARRATIVE: CASE EVENT DATE: 20091116
